FAERS Safety Report 20101697 (Version 1)
Quarter: 2021Q4

REPORT INFORMATION
  Report Type: Spontaneous
  Country: IN (occurrence: IN)
  Receive Date: 20211123
  Receipt Date: 20211123
  Transmission Date: 20220303
  Serious: Yes (Hospitalization, Other)
  Sender: FDA-Public Use
  Company Number: IN-TORRENT-00002960

PATIENT
  Age: 50 Year
  Sex: Male

DRUGS (15)
  1. ESOMEPRAZOLE [Suspect]
     Active Substance: ESOMEPRAZOLE
     Indication: Product used for unknown indication
     Dosage: UNKNOWN
     Route: 042
  2. FEVASTIN [Concomitant]
     Indication: Product used for unknown indication
     Dosage: UNKNOWN
  3. PAN [Concomitant]
     Indication: Product used for unknown indication
     Dosage: UNKNOWN
  4. VITAMIN K [Concomitant]
     Active Substance: PHYTONADIONE
     Indication: Product used for unknown indication
     Dosage: UNKNOWN
  5. ONDANSETRON HYDROCHLORIDE [Concomitant]
     Active Substance: ONDANSETRON HYDROCHLORIDE
     Indication: Product used for unknown indication
     Dosage: UNKNOWN
  6. A-HYDROCORT [Concomitant]
     Active Substance: HYDROCORTISONE SODIUM SUCCINATE
     Indication: Product used for unknown indication
     Dosage: UNKNOWN
  7. Montex LC [Concomitant]
     Indication: Product used for unknown indication
     Dosage: 0-0-0-1
     Route: 048
  8. betacap [Concomitant]
     Indication: Product used for unknown indication
     Dosage: 1-0-0-1
  9. ALDACTONE [Concomitant]
     Active Substance: SPIRONOLACTONE
     Indication: Product used for unknown indication
     Dosage: 1-0-0-0
     Route: 048
  10. lactihep [Concomitant]
     Indication: Product used for unknown indication
     Dosage: 0-0-10 ML
     Route: 048
  11. DOLO [Concomitant]
     Indication: Product used for unknown indication
     Dosage: 1 SOS, 3 TABLET
     Route: 048
  12. tazar (ATZ) [Concomitant]
     Indication: Product used for unknown indication
     Dosage: UNKNOWN
  13. URSOCOL [Concomitant]
     Indication: Product used for unknown indication
     Dosage: 1-0-0-1
     Route: 048
  14. NEUROBION FORTE [Concomitant]
     Active Substance: CYANOCOBALAMIN\PYRIDOXINE HYDROCHLORIDE\THIAMINE DISULFIDE
     Indication: Product used for unknown indication
     Dosage: UNKNOWN
  15. thrombophobe [Concomitant]
     Indication: Product used for unknown indication
     Dosage: UNKNOWN

REACTIONS (1)
  - Hypoglycaemia [Recovering/Resolving]
